FAERS Safety Report 19909234 (Version 1)
Quarter: 2021Q4

REPORT INFORMATION
  Report Type: Spontaneous
  Country: US (occurrence: US)
  Receive Date: 20211001
  Receipt Date: 20211001
  Transmission Date: 20220304
  Serious: No
  Sender: FDA-Public Use
  Company Number: US-AMARIN PHARMA, INC.-2021AMR000040

PATIENT
  Age: 52 Year
  Sex: Male
  Weight: 63.56 kg

DRUGS (6)
  1. VASCEPA [Suspect]
     Active Substance: ICOSAPENT ETHYL
     Indication: Blood triglycerides increased
     Route: 048
     Dates: start: 201811
  2. VASCEPA [Suspect]
     Active Substance: ICOSAPENT ETHYL
     Indication: Blood cholesterol increased
  3. SYNTHROID [Concomitant]
     Active Substance: LEVOTHYROXINE SODIUM
     Indication: Thyroid cancer
     Dates: start: 2007
  4. CALCIUM [Concomitant]
     Active Substance: CALCIUM
     Indication: Thyroid cancer
     Dates: start: 2007
  5. VITAMIN D [Concomitant]
     Active Substance: VITAMIN D NOS
     Indication: Thyroid cancer
     Dates: start: 2007
  6. SORAFENIB [Concomitant]
     Active Substance: SORAFENIB
     Indication: Thyroid cancer
     Route: 048
     Dates: start: 2007

REACTIONS (4)
  - Foreign body in throat [Unknown]
  - Wrong technique in product usage process [Unknown]
  - Off label use [Not Recovered/Not Resolved]
  - Product size issue [Unknown]

NARRATIVE: CASE EVENT DATE: 20181101
